FAERS Safety Report 15745517 (Version 7)
Quarter: 2020Q3

REPORT INFORMATION
  Report Type: Report from Study
  Country: US (occurrence: US)
  Receive Date: 20181220
  Receipt Date: 20190809
  Transmission Date: 20201105
  Serious: No
  Sender: FDA-Public Use
  Company Number: US-PFIZER INC-2018519049

PATIENT
  Age: 79 Year
  Sex: Male
  Weight: 99.32 kg

DRUGS (19)
  1. TALAZOPARIB. [Suspect]
     Active Substance: TALAZOPARIB
     Dosage: 0.5 MG, TAKE (2) 0.25MG DAILY
     Route: 048
     Dates: start: 20180503
  2. LEXAPRO [Concomitant]
     Active Substance: ESCITALOPRAM OXALATE
     Indication: DEPRESSION
     Dosage: 1 MG,QD
     Route: 048
     Dates: start: 20181104
  3. PRILOSEC [Concomitant]
     Active Substance: OMEPRAZOLE MAGNESIUM
     Indication: DYSPEPSIA
     Dosage: 20 MG, QD
     Route: 048
     Dates: start: 20180410
  4. VITAMIN A [Concomitant]
     Active Substance: VITAMIN A
     Indication: SUPPLEMENTATION THERAPY
     Dosage: 1, 1X/DAY
     Route: 048
     Dates: start: 20171116
  5. CALCIUM D3 [Concomitant]
     Active Substance: CALCIUM\CHOLECALCIFEROL
     Indication: PRODUCT PRESCRIBING ERROR
     Dosage: 1 T, BID
     Route: 048
     Dates: start: 20181116
  6. MUCINEX [Concomitant]
     Active Substance: GUAIFENESIN
     Indication: ALLERGIC SINUSITIS
     Dosage: 1 T, BID
     Route: 048
     Dates: start: 20180402
  7. STOOL SOFTENER (DOCUSATE) [Concomitant]
     Active Substance: DOCUSATE
     Indication: CONSTIPATION PROPHYLAXIS
     Dosage: 100 MG, QD
     Route: 048
     Dates: start: 20181026
  8. VITAMIN B12 [Concomitant]
     Active Substance: CYANOCOBALAMIN
     Indication: PRODUCT PRESCRIBING ERROR
     Dosage: MONTHLY
     Route: 030
     Dates: start: 201806
  9. TALAZOPARIB. [Suspect]
     Active Substance: TALAZOPARIB
     Indication: HORMONE-REFRACTORY PROSTATE CANCER
     Dosage: 1 MG, 1X/DAY
     Route: 048
     Dates: start: 20180406, end: 20180502
  10. OMEPRAZOLE. [Concomitant]
     Active Substance: OMEPRAZOLE
     Indication: GASTROOESOPHAGEAL REFLUX DISEASE
     Dosage: 40 MG, QD
     Route: 048
     Dates: start: 20181205
  11. OXYBUTININ [Concomitant]
     Active Substance: OXYBUTYNIN
     Indication: POLLAKIURIA
  12. ESSIAC TEA [Concomitant]
     Indication: IMMUNE SYSTEM DISORDER
     Dosage: 2 OZ, BID
     Route: 048
     Dates: start: 201403
  13. TYLENOL [Concomitant]
     Active Substance: ACETAMINOPHEN
     Indication: BACK PAIN
     Dosage: 500 MG, PRN
     Route: 048
     Dates: start: 2000
  14. TYLENOL [Concomitant]
     Active Substance: ACETAMINOPHEN
     Indication: OSTEOARTHRITIS
  15. OXYBUTININ [Concomitant]
     Active Substance: OXYBUTYNIN
     Indication: NOCTURIA
     Dosage: 10 MG, QD
     Route: 048
     Dates: start: 20171116
  16. METOPROLOL. [Concomitant]
     Active Substance: METOPROLOL
     Indication: HYPERTENSION
     Dosage: 25 MG, QD
     Route: 048
     Dates: start: 20180313
  17. IBUPROFEN. [Concomitant]
     Active Substance: IBUPROFEN
     Indication: PELVIC PAIN
     Dosage: 200 MG, PRN
     Route: 048
     Dates: start: 20180409
  18. ENZALUTAMIDE [Suspect]
     Active Substance: ENZALUTAMIDE
     Indication: HORMONE-REFRACTORY PROSTATE CANCER
     Dosage: 160 MG, TAKE 4 CAPSULES QD
     Route: 048
     Dates: start: 20180406
  19. SOTALOL. [Concomitant]
     Active Substance: SOTALOL
     Indication: ATRIAL FIBRILLATION
     Dosage: 120 MG, BID
     Route: 048
     Dates: start: 201803

REACTIONS (1)
  - Pulmonary embolism [Recovered/Resolved]

NARRATIVE: CASE EVENT DATE: 20181211
